FAERS Safety Report 12453761 (Version 1)
Quarter: 2016Q2

REPORT INFORMATION
  Report Type: Spontaneous
  Country: FR (occurrence: FR)
  Receive Date: 20160609
  Receipt Date: 20160609
  Transmission Date: 20160815
  Serious: Yes (Life-Threatening, Hospitalization, Other)
  Sender: FDA-Public Use
  Company Number: FR-ASTRAZENECA-2016SE60291

PATIENT
  Age: 923 Month
  Sex: Female

DRUGS (12)
  1. FUROSEMIDE. [Interacting]
     Active Substance: FUROSEMIDE
     Indication: CARDIAC FAILURE
     Route: 048
     Dates: start: 201209, end: 20160509
  2. LEVOTHYROX [Concomitant]
     Active Substance: LEVOTHYROXINE
  3. ALLOPURINOL. [Concomitant]
     Active Substance: ALLOPURINOL
  4. SPECIAFOLDINE [Concomitant]
     Active Substance: FOLIC ACID
  5. TAHOR [Concomitant]
     Active Substance: ATORVASTATIN CALCIUM
  6. COLCHIMAX [Concomitant]
     Active Substance: COLCHICINE\DICYCLOMINE HYDROCHLORIDE
  7. PARACETAMOL [Concomitant]
     Active Substance: ACETAMINOPHEN
  8. ATACAND [Suspect]
     Active Substance: CANDESARTAN CILEXETIL
     Indication: CARDIAC FAILURE
     Route: 048
     Dates: start: 2010, end: 20160509
  9. EPLERENONE. [Interacting]
     Active Substance: EPLERENONE
     Indication: CARDIAC FAILURE
     Route: 048
     Dates: start: 201511, end: 20160509
  10. KREDEX [Interacting]
     Active Substance: CARVEDILOL
     Indication: CARDIAC FAILURE
     Route: 048
     Dates: start: 2008, end: 20160509
  11. KARDEGIC [Concomitant]
     Active Substance: ASPIRIN LYSINE
  12. ATARAX [Concomitant]
     Active Substance: HYDROXYZINE\HYDROXYZINE HYDROCHLORIDE

REACTIONS (12)
  - Clostridium test positive [Unknown]
  - Constipation [Unknown]
  - Diarrhoea [Unknown]
  - Pyelonephritis [Unknown]
  - Blood creatine phosphokinase increased [Unknown]
  - Acute kidney injury [Recovered/Resolved]
  - Hyperkalaemia [Recovered/Resolved]
  - Electrocardiogram QRS complex prolonged [Unknown]
  - Drug interaction [Unknown]
  - Viral infection [Unknown]
  - Nephropathy [Unknown]
  - Chronic kidney disease [Unknown]

NARRATIVE: CASE EVENT DATE: 201505
